FAERS Safety Report 4919262-7 (Version None)
Quarter: 2006Q1

REPORT INFORMATION
  Report Type: 
  Country: None (occurrence: None)
  Receive Date: 20060215
  Receipt Date: 20060203
  Transmission Date: 20060701
  Serious: Yes (Hospitalization)
  Sender: FDA-Public Use
  Company Number: 2006PV008084

PATIENT
  Age: 59 Year
  Sex: Male
  Weight: 122.4712 kg

DRUGS (10)
  1. BYETTA [Suspect]
     Indication: DIABETES MELLITUS NON-INSULIN-DEPENDENT
     Dosage: 10 MCG; BID; SC
     Route: 058
  2. GLIPIZIDE [Concomitant]
  3. GLUCOPHAGE [Concomitant]
  4. ACTOS [Concomitant]
  5. HYDROCHLOROTHIAZIDE   / USA/ [Concomitant]
  6. LANTUS [Concomitant]
  7. LEXAPRO [Concomitant]
  8. LIPITOR [Concomitant]
  9. NEURONTIN [Concomitant]
  10. SANDIMMUINE [Concomitant]

REACTIONS (4)
  - ABSCESS LIMB [None]
  - BLOOD GLUCOSE INCREASED [None]
  - CELLULITIS [None]
  - STAPHYLOCOCCAL INFECTION [None]
